FAERS Safety Report 5510796-3 (Version None)
Quarter: 2007Q4

REPORT INFORMATION
  Report Type: 
  Country: None (occurrence: None)
  Receive Date: 20071107
  Receipt Date: 20071026
  Transmission Date: 20080405
  Serious: Yes (Hospitalization, Other)
  Sender: FDA-Public Use
  Company Number: 2007VX002574

PATIENT
  Age: 60 Year
  Sex: Male

DRUGS (4)
  1. MESTINON [Suspect]
     Indication: MYASTHENIA GRAVIS
     Dosage: 60 MG;QID
     Dates: start: 20070101
  2. PREDNISONE TAB [Concomitant]
  3. AZATHIOPRINE [Concomitant]
  4. PLASMA [Concomitant]

REACTIONS (8)
  - ATRIOVENTRICULAR BLOCK COMPLETE [None]
  - ATRIOVENTRICULAR BLOCK SECOND DEGREE [None]
  - BRADYCARDIA [None]
  - DIZZINESS POSTURAL [None]
  - MYASTHENIA GRAVIS CRISIS [None]
  - NODAL RHYTHM [None]
  - RESPIRATORY DISTRESS [None]
  - VENTRICULAR ASYSTOLE [None]
